FAERS Safety Report 22029579 (Version 1)
Quarter: 2023Q1

REPORT INFORMATION
  Report Type: Spontaneous
  Country: US (occurrence: None)
  Receive Date: 20230221
  Receipt Date: 20230221
  Transmission Date: 20230418
  Serious: Yes (Other)
  Sender: FDA-Public Use
  Company Number: None

PATIENT
  Age: 21 Year
  Sex: Female
  Weight: 65.5 kg

DRUGS (1)
  1. VENOFER [Suspect]
     Active Substance: IRON SUCROSE
     Indication: Iron deficiency anaemia
     Dosage: OTHER FREQUENCY : EVERY 7 DAYS;?
     Route: 041
     Dates: start: 20230215, end: 20230215

REACTIONS (8)
  - Urticaria [None]
  - Heart rate increased [None]
  - Nervousness [None]
  - Chest pain [None]
  - Back pain [None]
  - Infusion related reaction [None]
  - Palpitations [None]
  - Nausea [None]

NARRATIVE: CASE EVENT DATE: 20230215
